FAERS Safety Report 13881955 (Version 2)
Quarter: 2017Q4

REPORT INFORMATION
  Report Type: Report from Study
  Country: None (occurrence: AU)
  Receive Date: 20170818
  Receipt Date: 20171016
  Transmission Date: 20180320
  Serious: Yes (Hospitalization)
  Sender: FDA-Public Use
  Company Number: AU-ABBVIE-17K-008-1952009-00

PATIENT
  Sex: Female

DRUGS (2)
  1. DUODOPA [Suspect]
     Active Substance: CARBIDOPA\LEVODOPA
     Indication: PARKINSON^S DISEASE
     Dosage: 16 HOUR INFUSION
     Route: 050
     Dates: start: 20160603
  2. DUODOPA [Suspect]
     Active Substance: CARBIDOPA\LEVODOPA
     Dosage: IN EXCESS OF 6 EXTRA DOSES PER DAY
     Route: 050

REACTIONS (13)
  - Drug hypersensitivity [Unknown]
  - Drug effect incomplete [Unknown]
  - Freezing phenomenon [Unknown]
  - Pneumonia [Recovering/Resolving]
  - Respiratory disorder [Not Recovered/Not Resolved]
  - Influenza [Unknown]
  - Bradykinesia [Not Recovered/Not Resolved]
  - Poor quality sleep [Not Recovered/Not Resolved]
  - Hyperkinesia [Unknown]
  - Feeling hot [Unknown]
  - Tremor [Not Recovered/Not Resolved]
  - Drug effect variable [Unknown]
  - Dyskinesia [Not Recovered/Not Resolved]
